FAERS Safety Report 5782366-3 (Version None)
Quarter: 2008Q2

REPORT INFORMATION
  Report Type: 
  Country: None (occurrence: None)
  Receive Date: 20080623
  Receipt Date: 20080612
  Transmission Date: 20081010
  Serious: Yes (Other)
  Sender: FDA-Public Use
  Company Number: US-PFIZER INC-2008035885

PATIENT
  Sex: Female
  Weight: 66 kg

DRUGS (8)
  1. GEODON [Suspect]
     Indication: BIPOLAR I DISORDER
     Route: 048
     Dates: start: 20060328, end: 20070611
  2. GEODON [Suspect]
     Indication: PSYCHOTIC DISORDER
  3. GEODON [Suspect]
     Indication: BIPOLAR DISORDER
  4. ZOLOFT [Concomitant]
  5. KLONOPIN [Concomitant]
     Dosage: DAILY DOSE:2MG
  6. WELLBUTRIN XL [Concomitant]
  7. DOXAZOSIN MESYLATE [Concomitant]
  8. ROZEREM [Concomitant]

REACTIONS (14)
  - AMNESIA [None]
  - ARTHRALGIA [None]
  - ASTHENIA [None]
  - BLOOD CORTISOL INCREASED [None]
  - CHAPPED LIPS [None]
  - DROOLING [None]
  - FEELING ABNORMAL [None]
  - GAIT DISTURBANCE [None]
  - JOINT SWELLING [None]
  - NERVOUSNESS [None]
  - RESTLESS LEGS SYNDROME [None]
  - TARDIVE DYSKINESIA [None]
  - WEIGHT INCREASED [None]
  - WITHDRAWAL SYNDROME [None]
